FAERS Safety Report 18550280 (Version 1)
Quarter: 2020Q4

REPORT INFORMATION
  Report Type: Spontaneous
  Country: US (occurrence: US)
  Receive Date: 20201126
  Receipt Date: 20201126
  Transmission Date: 20210114
  Serious: Yes (Other)
  Sender: FDA-Public Use
  Company Number: US-009507513-2011USA013968

PATIENT
  Sex: Male

DRUGS (3)
  1. LUNESTA [Suspect]
     Active Substance: ESZOPICLONE
     Dosage: UNK, UNKNOWN
  2. EFFIENT [Suspect]
     Active Substance: PRASUGREL HYDROCHLORIDE
     Indication: STENT PLACEMENT
     Dosage: 10 MG, QD
     Dates: start: 201103
  3. PRINIVIL [Suspect]
     Active Substance: LISINOPRIL
     Dosage: UNK, UNKNOWN

REACTIONS (10)
  - Feeling hot [Unknown]
  - Ulcer [Unknown]
  - Dyspnoea [Unknown]
  - Stent placement [Unknown]
  - Gout [Unknown]
  - Contusion [Unknown]
  - Injury [Unknown]
  - Stent placement [Unknown]
  - Blood pressure abnormal [Unknown]
  - Irritability [Unknown]

NARRATIVE: CASE EVENT DATE: 201108
